FAERS Safety Report 4353733-X (Version None)
Quarter: 2004Q2

REPORT INFORMATION
  Report Type: 
  Country: None (occurrence: None)
  Receive Date: 20040430
  Receipt Date: 20030319
  Transmission Date: 20050107
  Serious: Yes (Hospitalization)
  Sender: FDA-Public Use
  Company Number: 2003UW03681

PATIENT
  Age: 77 Year
  Sex: Female

DRUGS (3)
  1. NEXIUM [Suspect]
     Indication: GASTROOESOPHAGEAL REFLUX DISEASE
     Dosage: 40 MG QD PO
     Route: 048
     Dates: start: 20030101
  2. LOSARTAN POTASSIUM [Concomitant]
  3. LEVOTHYROXINE [Concomitant]

REACTIONS (1)
  - HYPERSENSITIVITY [None]
